FAERS Safety Report 25015119 (Version 1)
Quarter: 2025Q1

REPORT INFORMATION
  Report Type: Spontaneous
  Country: JP (occurrence: JP)
  Receive Date: 20250226
  Receipt Date: 20250226
  Transmission Date: 20250409
  Serious: Yes (Other)
  Sender: PFIZER
  Company Number: JP-PFIZER INC-PV202400168768

PATIENT
  Age: 13 Year
  Sex: Male
  Weight: 32.45 kg

DRUGS (3)
  1. NGENLA [Suspect]
     Active Substance: SOMATROGON-GHLA
     Indication: Growth hormone deficiency
     Dosage: 2.3 MG, WEEKLY
     Route: 058
     Dates: start: 20240131, end: 20241108
  2. ABILIFY [Concomitant]
     Active Substance: ARIPIPRAZOLE
     Indication: Attention deficit hyperactivity disorder
     Dosage: 3 MG, 1X/DAY
     Dates: start: 202308, end: 20241022
  3. ABILIFY [Concomitant]
     Active Substance: ARIPIPRAZOLE
     Indication: Autism spectrum disorder
     Dosage: 3 MG, 1X/DAY
     Dates: start: 20241111, end: 20241113

REACTIONS (2)
  - Haematemesis [Recovered/Resolved]
  - Headache [Recovered/Resolved]

NARRATIVE: CASE EVENT DATE: 20240926
